FAERS Safety Report 25456255 (Version 1)
Quarter: 2025Q2

REPORT INFORMATION
  Report Type: Spontaneous
  Country: DE (occurrence: DE)
  Receive Date: 20250619
  Receipt Date: 20250619
  Transmission Date: 20250717
  Serious: Yes (Hospitalization)
  Sender: NOVARTIS
  Company Number: DE-002147023-NVSC2025DE095380

PATIENT
  Sex: Female

DRUGS (1)
  1. KISQALI [Suspect]
     Active Substance: RIBOCICLIB SUCCINATE
     Indication: Breast cancer
     Route: 065

REACTIONS (3)
  - Nausea [Unknown]
  - Dizziness [Unknown]
  - Atrial fibrillation [Unknown]
